FAERS Safety Report 9684614 (Version 1)
Quarter: 2013Q4

REPORT INFORMATION
  Report Type: Spontaneous
  Country: JP (occurrence: JP)
  Receive Date: 20131112
  Receipt Date: 20131112
  Transmission Date: 20140711
  Serious: Yes (Hospitalization)
  Sender: FDA-Public Use
  Company Number: JP-BRISTOL-MYERS SQUIBB COMPANY-19803519

PATIENT
  Age: 54 Year
  Sex: Male

DRUGS (3)
  1. METGLUCO [Suspect]
     Indication: DIABETES MELLITUS
     Route: 048
     Dates: start: 2011
  2. VILDAGLIPTIN [Suspect]
     Route: 048
     Dates: start: 201306
  3. ACTOS [Suspect]
     Route: 048
     Dates: start: 201306

REACTIONS (1)
  - Thrombocytopenia [Recovering/Resolving]
